FAERS Safety Report 5337322-6 (Version None)
Quarter: 2007Q2

REPORT INFORMATION
  Report Type: 
  Country: None (occurrence: None)
  Receive Date: 20070529
  Receipt Date: 20070517
  Transmission Date: 20071010
  Serious: Yes (Other)
  Sender: FDA-Public Use
  Company Number: US-PFIZER INC-2007040439

PATIENT
  Sex: Female
  Weight: 33.1 kg

DRUGS (1)
  1. LIPITOR [Suspect]
     Dates: start: 20061101, end: 20061120

REACTIONS (3)
  - ABASIA [None]
  - IMPAIRED DRIVING ABILITY [None]
  - MUSCULAR WEAKNESS [None]
